FAERS Safety Report 6402390-7 (Version None)
Quarter: 2009Q4

REPORT INFORMATION
  Report Type: 
  Country: None (occurrence: None)
  Receive Date: 20091015
  Receipt Date: 20091006
  Transmission Date: 20100525
  Serious: Yes (Hospitalization)
  Sender: FDA-Public Use
  Company Number: PHHO2009DE11614

PATIENT
  Sex: Male
  Weight: 85.8 kg

DRUGS (1)
  1. RAD 666 RAD+TAB [Suspect]
     Indication: HEPATIC CANCER METASTATIC
     Dosage: 5 MG/DAY
     Route: 048
     Dates: start: 20090908, end: 20090923

REACTIONS (8)
  - ABDOMINAL CAVITY DRAINAGE [None]
  - ACUTE HEPATIC FAILURE [None]
  - ASCITES [None]
  - BLOOD CREATININE INCREASED [None]
  - HEPATORENAL SYNDROME [None]
  - PERITONITIS BACTERIAL [None]
  - RENAL IMPAIRMENT [None]
  - WHITE BLOOD CELL COUNT INCREASED [None]
